FAERS Safety Report 9955218 (Version 1)
Quarter: 2014Q1

REPORT INFORMATION
  Report Type: Report from Study
  Country: US (occurrence: US)
  Receive Date: 20140304
  Receipt Date: 20140304
  Transmission Date: 20141002
  Serious: No
  Sender: FDA-Public Use
  Company Number: US-ABBVIE-13P-163-1080361-00

PATIENT
  Age: 33 Year
  Sex: Female

DRUGS (4)
  1. HUMIRA [Suspect]
     Indication: COLITIS ULCERATIVE
     Dosage: LOADING DOSE
     Route: 058
     Dates: start: 20130420, end: 20130420
  2. HUMIRA [Suspect]
  3. CANASA [Concomitant]
     Indication: COLITIS ULCERATIVE
     Dosage: EVERY NIGHT
  4. ASACOL [Concomitant]
     Indication: COLITIS ULCERATIVE
     Dosage: 2.4 GM DAILY

REACTIONS (2)
  - Pruritus [Not Recovered/Not Resolved]
  - Urticaria [Not Recovered/Not Resolved]
